FAERS Safety Report 9692953 (Version 2)
Quarter: 2014Q4

REPORT INFORMATION
  Report Type: Spontaneous
  Country: US (occurrence: US)
  Receive Date: 20131118
  Receipt Date: 20141218
  Transmission Date: 20150529
  Serious: No
  Sender: FDA-Public Use
  Company Number: US-GLAXOSMITHKLINE-A1044620A

PATIENT

DRUGS (4)
  1. COREG CR [Suspect]
     Active Substance: CARVEDILOL PHOSPHATE
     Indication: CARDIAC FAILURE
     Dosage: 20 MG INCREASED TO 40 MG ON 2 AUGUST 2012
     Route: 065
     Dates: start: 201003
  2. COREG [Suspect]
     Active Substance: CARVEDILOL
     Indication: PRODUCT USED FOR UNKNOWN INDICATION
     Dosage: 6.25 MG DECREASED TO 3.125 MG ON 10 AUGUST 2010
     Route: 065
     Dates: start: 20100317
  3. COREG CR [Suspect]
     Active Substance: CARVEDILOL PHOSPHATE
     Indication: LEFT VENTRICULAR FAILURE
  4. COREG CR [Suspect]
     Active Substance: CARVEDILOL PHOSPHATE
     Indication: HYPERTENSION

REACTIONS (3)
  - Insomnia [Unknown]
  - Dizziness [Not Recovered/Not Resolved]
  - Malaise [Unknown]
